FAERS Safety Report 12564388 (Version 1)
Quarter: 2016Q3

REPORT INFORMATION
  Report Type: Spontaneous
  Country: US (occurrence: US)
  Receive Date: 20160718
  Receipt Date: 20160718
  Transmission Date: 20161109
  Serious: Yes (Hospitalization, Other)
  Sender: FDA-Public Use
  Company Number: US-SCIEGEN PHARMACEUTICALS INC-2016SCILIT00321

PATIENT
  Age: 46 Year
  Sex: Male

DRUGS (3)
  1. HYDROCHLOROTHIAZIDE TABLETS [Suspect]
     Active Substance: HYDROCHLOROTHIAZIDE
     Indication: HYPERTENSION
     Dosage: UNK
     Route: 065
  2. CALCIUM CARBONATE. [Suspect]
     Active Substance: CALCIUM CARBONATE
     Indication: PRODUCT USED FOR UNKNOWN INDICATION
     Dosage: UNK
     Route: 065
  3. NSAIDS [Suspect]
     Active Substance: UNSPECIFIED INGREDIENT
     Indication: ARTHRITIS
     Dosage: UNK
     Route: 065

REACTIONS (10)
  - Vomiting [Unknown]
  - Chest pain [Unknown]
  - Bundle branch block left [Recovered/Resolved]
  - Nausea [Unknown]
  - Milk-alkali syndrome [Unknown]
  - Acute kidney injury [Unknown]
  - Abdominal pain upper [Unknown]
  - Abdominal tenderness [Unknown]
  - Electrocardiogram ST segment elevation [Unknown]
  - Hypercalcaemia [Unknown]
